FAERS Safety Report 7145791-4 (Version None)
Quarter: 2010Q4

REPORT INFORMATION
  Report Type: 
  Country: None (occurrence: None)
  Receive Date: 20101208
  Receipt Date: 20101207
  Transmission Date: 20110411
  Serious: Yes (Other)
  Sender: FDA-Public Use
  Company Number: A0888257A

PATIENT
  Age: 36 Year
  Sex: Male

DRUGS (2)
  1. GOODYS EXTRA STRENGTH HEADACHE POWDER [Suspect]
     Route: 048
  2. BC HEADACHE POWDER [Suspect]
     Route: 048

REACTIONS (7)
  - DEPENDENCE [None]
  - DRUG ADMINISTRATION ERROR [None]
  - INCORRECT DOSE ADMINISTERED [None]
  - MENTAL DISORDER [None]
  - PRODUCT EXPIRATION DATE ISSUE [None]
  - PRODUCT LOT NUMBER ISSUE [None]
  - PRODUCT QUALITY ISSUE [None]
